FAERS Safety Report 5533179-9 (Version None)
Quarter: 2007Q4

REPORT INFORMATION
  Report Type: 
  Country: None (occurrence: None)
  Receive Date: 20071204
  Receipt Date: 20071126
  Transmission Date: 20080405
  Serious: Yes (Death)
  Sender: FDA-Public Use
  Company Number: FR-ROCHE-516944

PATIENT
  Age: 54 Year
  Sex: Male

DRUGS (1)
  1. ROCEPHIN [Suspect]
     Indication: URINARY TRACT INFECTION
     Dosage: PATIENT WAS GIVEN 1 G BUT INFUSION STOPPED AFTER 10 DROPS
     Route: 042
     Dates: start: 20070904, end: 20070904

REACTIONS (1)
  - ANAPHYLACTIC SHOCK [None]
